FAERS Safety Report 9841307 (Version 1)
Quarter: 2013Q4

REPORT INFORMATION
  Report Type: Spontaneous
  Country: US (occurrence: None)
  Receive Date: 20131219
  Receipt Date: 20131219
  Transmission Date: 20140711
  Serious: Yes (Life-Threatening, Hospitalization)
  Sender: FDA-Public Use
  Company Number: 163-20785-10030159

PATIENT
  Age: 62 Year
  Sex: Male
  Weight: 83.92 kg

DRUGS (14)
  1. THALOMID [Suspect]
     Indication: PLASMA CELL MYELOMA
     Dosage: 100 MG, 1 IN 1 D, PO
     Route: 048
     Dates: start: 20091106, end: 201002
  2. DEXAMETHASONE (DEXAMETHASONE) (UNKNOWN) [Concomitant]
  3. SIMVASTATIN (SIMVASTATIN) (UNKNOWN) [Concomitant]
  4. DOXYCYCLINE (DOXYCYCLINE) (UNKNOWN) [Concomitant]
  5. IBUPROFAN (IBUPROFEN) (UNKNOWN) [Concomitant]
  6. BABY ASPIRIN (ACETYLSALICYLIC ACID) (UNKNOWN) [Concomitant]
  7. VICODIN (VICODIN) (UNKNOWN) [Concomitant]
  8. ROCEPHIN (CEFTRIAXONE SODIUM) (UNKNOWN) [Concomitant]
  9. ALPHA LIPOIC ACID (THIOCTIC ACID) (UNKNOWN) [Concomitant]
  10. VITAMIN B COMPLEX (B-KOMPLEX ^LECIVA^) (UNKNOWN) [Concomitant]
  11. CALCIUM (CALCIUM) (UNKNOWN) [Concomitant]
  12. LRICA (PREGABALIN) (UNKNOWN) [Concomitant]
  13. MAGNESIUM (MAGNESIUM) (UNKNOWN) [Concomitant]
  14. POTASSIUM (POTASSIUM) (UNKNOWN) [Concomitant]

REACTIONS (2)
  - Deep vein thrombosis [None]
  - Pulmonary embolism [None]
